FAERS Safety Report 6752376-8 (Version None)
Quarter: 2010Q2

REPORT INFORMATION
  Report Type: 
  Country: None (occurrence: None)
  Receive Date: 20100601
  Receipt Date: 20100601
  Transmission Date: 20101027
  Serious: No
  Sender: FDA-Public Use
  Company Number: None

PATIENT
  Age: 49 Year
  Sex: Female
  Weight: 61.2356 kg

DRUGS (2)
  1. ASTROPRO 137 UG PER SPRAY MEDA [Suspect]
     Indication: ASTHMA
     Dosage: 1 SPRAY BID NASAL
     Route: 045
     Dates: start: 20100524, end: 20100528
  2. ASTROPRO 137 UG PER SPRAY MEDA [Suspect]
     Indication: MULTIPLE ALLERGIES
     Dosage: 1 SPRAY BID NASAL
     Route: 045
     Dates: start: 20100524, end: 20100528

REACTIONS (5)
  - NAUSEA [None]
  - PRODUCT SUBSTITUTION ISSUE [None]
  - PRODUCT TASTE ABNORMAL [None]
  - RETCHING [None]
  - THERAPEUTIC RESPONSE DECREASED [None]
